FAERS Safety Report 4459248-2 (Version None)
Quarter: 2004Q3

REPORT INFORMATION
  Report Type: 
  Country: None (occurrence: None)
  Receive Date: 20040920
  Receipt Date: 20040920
  Transmission Date: 20050211
  Serious: Yes (Hospitalization)
  Sender: FDA-Public Use
  Company Number: None

PATIENT
  Age: 54 Year
  Sex: Female
  Weight: 88 kg

DRUGS (12)
  1. THALIDOMIDE, CELGENE [Suspect]
     Indication: NEOPLASM RECURRENCE
     Dosage: 500 MG DAY PO
     Route: 048
     Dates: start: 20040628
  2. THALIDOMIDE, CELGENE [Suspect]
     Indication: OVARIAN CANCER
     Dosage: 500 MG DAY PO
     Route: 048
     Dates: start: 20040628
  3. TOPOTECAN, GLAXOSMITHKLINE [Suspect]
     Indication: NEOPLASM RECURRENCE
     Dosage: 1.25 MG/M2 X5D, Q21D, IV
     Route: 042
     Dates: start: 20040628
  4. TOPOTECAN, GLAXOSMITHKLINE [Suspect]
     Indication: OVARIAN CANCER
     Dosage: 1.25 MG/M2 X5D, Q21D, IV
     Route: 042
     Dates: start: 20040628
  5. MULTIVITAMINE [Concomitant]
  6. TRAZODONE HCL [Concomitant]
  7. COUMADIN [Concomitant]
  8. ATIVAN [Concomitant]
  9. SENNA [Concomitant]
  10. LAXATIVE [Concomitant]
  11. ZANTAC [Concomitant]
  12. COLACE [Concomitant]

REACTIONS (3)
  - BODY TEMPERATURE INCREASED [None]
  - DYSPNOEA [None]
  - PLEURAL EFFUSION [None]
